FAERS Safety Report 21174747 (Version 1)
Quarter: 2022Q3

REPORT INFORMATION
  Report Type: Spontaneous
  Country: CN (occurrence: CN)
  Receive Date: 20220805
  Receipt Date: 20220805
  Transmission Date: 20221027
  Serious: Yes (Other)
  Sender: FDA-Public Use
  Company Number: None

PATIENT
  Age: 47 Year
  Sex: Male
  Weight: 73 kg

DRUGS (4)
  1. CYCLOPHOSPHAMIDE [Suspect]
     Active Substance: CYCLOPHOSPHAMIDE
     Indication: Diffuse large B-cell lymphoma
     Dosage: 1.4 G, QD DILUTED WITH SODIUM CHLORIDE INJECTION 500ML
     Route: 041
     Dates: start: 20220727, end: 20220727
  2. CYCLOPHOSPHAMIDE [Suspect]
     Active Substance: CYCLOPHOSPHAMIDE
     Dosage: DOSE REINTRODUCED AGAIN 2H LATER, 1.4 G, QD DILUTED WITH SODIUM CHLORIDE INJECTION 500ML
     Route: 041
     Dates: start: 20220727, end: 20220727
  3. SODIUM CHLORIDE [Suspect]
     Active Substance: SODIUM CHLORIDE
     Indication: Medication dilution
     Dosage: 500 ML, QD, DILUTED IN CYCLOPHOSPHAMIDE 1.4 G.
     Route: 041
     Dates: start: 20220727, end: 20220727
  4. SODIUM CHLORIDE [Suspect]
     Active Substance: SODIUM CHLORIDE
     Dosage: DOSE REINTRODUCED AGAIN 2H LATER, 500 ML, QD, DILUTED IN CYCLOPHOSPHAMIDE 1.4 G.
     Route: 041
     Dates: start: 20220727, end: 20220727

REACTIONS (1)
  - Quadriplegia [Recovered/Resolved]

NARRATIVE: CASE EVENT DATE: 20220727
